FAERS Safety Report 5949832-9 (Version None)
Quarter: 2008Q4

REPORT INFORMATION
  Report Type: 
  Country: None (occurrence: None)
  Receive Date: 20081112
  Receipt Date: 20081103
  Transmission Date: 20090506
  Serious: Yes (Hospitalization)
  Sender: FDA-Public Use
  Company Number: US-BIOGENIDEC-2008BI007741

PATIENT
  Age: 39 Year
  Sex: Female
  Weight: 53 kg

DRUGS (2)
  1. AVONEX [Suspect]
     Indication: MULTIPLE SCLEROSIS
     Route: 030
     Dates: start: 20040528, end: 20041020
  2. AVONEX [Suspect]
     Route: 030
     Dates: start: 20050101

REACTIONS (4)
  - BLINDNESS UNILATERAL [None]
  - NEOPLASM MALIGNANT [None]
  - OPTIC NEURITIS [None]
  - VISUAL ACUITY REDUCED [None]
